FAERS Safety Report 8022240 (Version 3)
Quarter: 2013Q3

REPORT INFORMATION
  Report Type: Spontaneous
  Country: US (occurrence: US)
  Receive Date: 20110705
  Receipt Date: 20130725
  Transmission Date: 20140515
  Serious: Yes (Hospitalization, Other)
  Sender: FDA-Public Use
  Company Number: US-ASTRAZENECA-2010SE38059

PATIENT
  Age: 57 Year
  Sex: Female
  Weight: 67.6 kg

DRUGS (10)
  1. NEXIUM [Suspect]
     Indication: GASTROOESOPHAGEAL REFLUX DISEASE
     Route: 048
  2. NEXIUM [Suspect]
     Indication: GASTROOESOPHAGEAL REFLUX DISEASE
     Dosage: ONE OR TWO CAPSULE PER DAY
     Route: 048
  3. NEXIUM [Suspect]
     Indication: GASTROOESOPHAGEAL REFLUX DISEASE
     Route: 048
  4. NEXIUM [Suspect]
     Indication: GASTROOESOPHAGEAL REFLUX DISEASE
     Route: 048
     Dates: start: 2007
  5. NEXIUM [Suspect]
     Indication: GASTROOESOPHAGEAL REFLUX DISEASE
     Route: 048
     Dates: start: 2007
  6. NEXIUM [Suspect]
     Indication: GASTROOESOPHAGEAL REFLUX DISEASE
     Route: 048
     Dates: start: 2010
  7. LISINOPRIL [Concomitant]
     Indication: HYPERTENSION
     Route: 048
  8. ZANTAC [Concomitant]
     Indication: GASTRIC DISORDER
     Route: 048
  9. CARAFATE [Concomitant]
     Indication: GASTRIC DISORDER
     Route: 048
  10. SYNVISC [Concomitant]

REACTIONS (14)
  - Oesophageal haemorrhage [Unknown]
  - Haemorrhage [Unknown]
  - Gastrointestinal haemorrhage [Recovered/Resolved]
  - Oesophageal disorder [Unknown]
  - Gastric disorder [Unknown]
  - Oesophagitis [Unknown]
  - Gastrooesophageal sphincter insufficiency [Unknown]
  - Gastrooesophageal reflux disease [Unknown]
  - Weight increased [Unknown]
  - Abdominal pain upper [Unknown]
  - Flatulence [Unknown]
  - Drug ineffective [Recovered/Resolved]
  - Drug effect decreased [Unknown]
  - Drug dose omission [Unknown]
